FAERS Safety Report 14605258 (Version 1)
Quarter: 2018Q1

REPORT INFORMATION
  Report Type: Spontaneous
  Country: NZ (occurrence: NZ)
  Receive Date: 20180306
  Receipt Date: 20180306
  Transmission Date: 20180509
  Serious: Yes (Hospitalization, Other)
  Sender: FDA-Public Use
  Company Number: NZ-MYLANLABS-2017M1036470

PATIENT
  Sex: Female

DRUGS (1)
  1. ENLAFAX XR [Suspect]
     Active Substance: VENLAFAXINE HYDROCHLORIDE
     Indication: PRODUCT USED FOR UNKNOWN INDICATION
     Dosage: 225 MG, UNK
     Route: 048
     Dates: start: 20170523

REACTIONS (4)
  - Apathy [Unknown]
  - Drug ineffective [Unknown]
  - General physical condition abnormal [Unknown]
  - Suicidal ideation [Unknown]
